FAERS Safety Report 22969024 (Version 10)
Quarter: 2025Q2

REPORT INFORMATION
  Report Type: Report from Study
  Country: US (occurrence: US)
  Receive Date: 20230922
  Receipt Date: 20250402
  Transmission Date: 20250716
  Serious: Yes (Other)
  Sender: TAKEDA
  Company Number: US-TAKEDA-2023TUS024478

PATIENT
  Age: 30 Year
  Sex: Female
  Weight: 94 kg

DRUGS (45)
  1. HUMAN IMMUNOGLOBULIN G [Suspect]
     Active Substance: HUMAN IMMUNOGLOBULIN G
     Indication: White blood cell disorder
  2. HUMAN IMMUNOGLOBULIN G [Suspect]
     Active Substance: HUMAN IMMUNOGLOBULIN G
     Indication: Habitual abortion
     Dosage: 400 MILLIGRAM/KILOGRAM, 1/WEEK
  3. HUMAN IMMUNOGLOBULIN G [Suspect]
     Active Substance: HUMAN IMMUNOGLOBULIN G
     Indication: Immune system disorder
  4. HUMAN IMMUNOGLOBULIN G [Suspect]
     Active Substance: HUMAN IMMUNOGLOBULIN G
     Indication: Infertility female
  5. EPINEPHRINE [Concomitant]
     Active Substance: EPINEPHRINE
  6. ACETAMINOPHEN [Concomitant]
     Active Substance: ACETAMINOPHEN
  7. METFORMIN HYDROCHLORIDE [Concomitant]
     Active Substance: METFORMIN HYDROCHLORIDE
  8. SYNTHROID [Concomitant]
     Active Substance: LEVOTHYROXINE SODIUM
  9. EXCEDRIN MIGRAINE [Concomitant]
     Active Substance: ACETAMINOPHEN\ASPIRIN\CAFFEINE
     Indication: Migraine
  10. SODIUM CHLORIDE [Concomitant]
     Active Substance: SODIUM CHLORIDE
  11. CLARITIN-D 12 HOUR [Concomitant]
     Active Substance: LORATADINE\PSEUDOEPHEDRINE SULFATE
  12. LIDOCAINE [Concomitant]
     Active Substance: LIDOCAINE
  13. BENADRYL ALLERGY [Concomitant]
     Active Substance: DIPHENHYDRAMINE HYDROCHLORIDE
  14. DIPHENHYDRAMINE HYDROCHLORIDE [Concomitant]
     Active Substance: DIPHENHYDRAMINE HYDROCHLORIDE
  15. OZEMPIC [Concomitant]
     Active Substance: SEMAGLUTIDE
  16. VITAMIN D3 [Concomitant]
     Active Substance: CHOLECALCIFEROL
  17. VITAMIN E [Concomitant]
     Active Substance: .ALPHA.-TOCOPHEROL
  18. PREDNISONE [Concomitant]
     Active Substance: PREDNISONE
  19. PROGESTERONE [Concomitant]
     Active Substance: PROGESTERONE
  20. PLAQUENIL [Concomitant]
     Active Substance: HYDROXYCHLOROQUINE SULFATE
  21. Estrogens esterified;Methyltestosterone [Concomitant]
  22. FAMOTIDINE [Concomitant]
     Active Substance: FAMOTIDINE
  23. LOVENOX [Concomitant]
     Active Substance: ENOXAPARIN SODIUM
  24. TACROLIMUS [Concomitant]
     Active Substance: TACROLIMUS
  25. IRON [Concomitant]
     Active Substance: IRON
  26. HUMIRA [Concomitant]
     Active Substance: ADALIMUMAB
  27. ASPIRIN [Concomitant]
     Active Substance: ASPIRIN
  28. NEUPOGEN [Concomitant]
     Active Substance: FILGRASTIM
  29. DIPHENHYDRAMINE [Concomitant]
     Active Substance: DIPHENHYDRAMINE
  30. METRONIDAZOLE [Concomitant]
     Active Substance: METRONIDAZOLE
  31. LEVOFLOXACIN [Concomitant]
     Active Substance: LEVOFLOXACIN
  32. VALACYCLOVIR [Concomitant]
     Active Substance: VALACYCLOVIR HYDROCHLORIDE
  33. FLUCONAZOLE [Concomitant]
     Active Substance: FLUCONAZOLE
  34. OMNITROPE [Concomitant]
     Active Substance: SOMATROPIN
  35. DOXYCYCLINE HYCLATE [Concomitant]
     Active Substance: DOXYCYCLINE HYCLATE
  36. FOLLISTIM AQ [Concomitant]
     Active Substance: FOLLITROPIN
  37. PEPCID [Concomitant]
     Active Substance: FAMOTIDINE
  38. PREGNYL [Concomitant]
     Active Substance: CHORIOGONADOTROPIN ALFA
  39. ESTRADIOL [Concomitant]
     Active Substance: ESTRADIOL
  40. ONDANSETRON [Concomitant]
     Active Substance: ONDANSETRON
  41. OXYCODONE AND ACETAMINOPHEN [Concomitant]
     Active Substance: ACETAMINOPHEN\OXYCODONE HYDROCHLORIDE
  42. AZO [Concomitant]
     Active Substance: PHENAZOPYRIDINE HYDROCHLORIDE
  43. ONDANSETRON HYDROCHLORIDE [Concomitant]
     Active Substance: ONDANSETRON HYDROCHLORIDE
  44. VITAMINS [Concomitant]
     Active Substance: VITAMINS
  45. CHOLECALCIFEROL [Concomitant]
     Active Substance: CHOLECALCIFEROL

REACTIONS (17)
  - Abortion threatened [Unknown]
  - Nephrolithiasis [Unknown]
  - Abortion spontaneous [Unknown]
  - Respiratory tract infection [Unknown]
  - Drug ineffective for unapproved indication [Unknown]
  - COVID-19 [Unknown]
  - Incorrect drug administration rate [Unknown]
  - Product dose omission issue [Unknown]
  - Product use in unapproved indication [Unknown]
  - Agitation [Unknown]
  - Rash [Unknown]
  - Muscle spasms [Unknown]
  - Flushing [Unknown]
  - Hypertension [Unknown]
  - Fatigue [Unknown]
  - Dizziness [Recovered/Resolved]
  - Headache [Unknown]

NARRATIVE: CASE EVENT DATE: 20230222
